FAERS Safety Report 4783682-4 (Version None)
Quarter: 2005Q3

REPORT INFORMATION
  Report Type: 
  Country: None (occurrence: None)
  Receive Date: 20050927
  Receipt Date: 20050523
  Transmission Date: 20060218
  Serious: No
  Sender: FDA-Public Use
  Company Number: USA050598770

PATIENT
  Age: 12 Year
  Sex: Male

DRUGS (3)
  1. STRATTERA [Suspect]
     Indication: AUTISM
     Dosage: 25 MG/2 DAY
     Dates: start: 20040820
  2. FLAX SEED OIL [Concomitant]
  3. ZINC [Concomitant]

REACTIONS (5)
  - CONSTIPATION [None]
  - DYSURIA [None]
  - ERUCTATION [None]
  - MOOD SWINGS [None]
  - SOMNOLENCE [None]
